FAERS Safety Report 6759409-3 (Version None)
Quarter: 2010Q2

REPORT INFORMATION
  Report Type: 
  Country: None (occurrence: None)
  Receive Date: 20100603
  Receipt Date: 20100601
  Transmission Date: 20101027
  Serious: Yes (Disabling)
  Sender: FDA-Public Use
  Company Number: 1022556-2010-00032

PATIENT
  Age: 12 Year
  Sex: Female

DRUGS (2)
  1. BULLFROG SUPERBLOCK SPF 50 50Z [Suspect]
     Indication: PROPHYLAXIS
     Dosage: TOPICAL
     Route: 061
     Dates: start: 20100531
  2. BULLFROG SUPERBLOCK SPF 50 50Z [Suspect]
     Indication: SUNBURN
     Dosage: TOPICAL
     Route: 061
     Dates: start: 20100531

REACTIONS (2)
  - BURNS SECOND DEGREE [None]
  - SUNBURN [None]
